FAERS Safety Report 18056426 (Version 1)
Quarter: 2020Q3

REPORT INFORMATION
  Report Type: Spontaneous
  Country: US (occurrence: US)
  Receive Date: 20200722
  Receipt Date: 20200722
  Transmission Date: 20201103
  Serious: Yes (Other)
  Sender: FDA-Public Use
  Company Number: NVSC2020US199322

PATIENT
  Age: 75 Year
  Sex: Female
  Weight: 61.23 kg

DRUGS (4)
  1. IBRANCE [Suspect]
     Active Substance: PALBOCICLIB
     Indication: BREAST CANCER
     Dosage: 75 MG (ONCE A DAY FOR THREE WEEKS ON AND OFF)
     Route: 048
     Dates: start: 201910
  2. LETROZOLE. [Suspect]
     Active Substance: LETROZOLE
     Indication: PRODUCT USED FOR UNKNOWN INDICATION
     Dosage: 2.5 MG, QD
     Route: 048
  3. LORAZEPAM. [Suspect]
     Active Substance: LORAZEPAM
     Indication: NAUSEA
     Dosage: 1 DF, QD (TAKEN IN THE MORNING)
     Route: 048
  4. MORPHINE SULFATE. [Suspect]
     Active Substance: MORPHINE SULFATE
     Indication: BACK PAIN
     Dosage: 15 MG, UNKNOWN (IF HAVE ANY BACK PAIN OR SOMETHING LIKE)
     Route: 048

REACTIONS (2)
  - Breast mass [Not Recovered/Not Resolved]
  - Product packaging difficult to open [Unknown]

NARRATIVE: CASE EVENT DATE: 20200601
